FAERS Safety Report 9937380 (Version 2)
Quarter: 2014Q2

REPORT INFORMATION
  Report Type: Spontaneous
  Country: MX (occurrence: MX)
  Receive Date: 20140303
  Receipt Date: 20140613
  Transmission Date: 20141212
  Serious: Yes (Death, Other)
  Sender: FDA-Public Use
  Company Number: MX-ORION CORPORATION ORION PHARMA-ENTC2014-0074

PATIENT
  Age: 92 Year
  Sex: Female

DRUGS (5)
  1. STALEVO [Suspect]
     Indication: PARKINSON^S DISEASE
     Dosage: STRENGTH: 50/12.5/200 MG
     Route: 048
     Dates: start: 201106, end: 201301
  2. STALEVO [Suspect]
     Dosage: STRENGTH: 100/25/200 MG
     Route: 048
     Dates: start: 201301, end: 201312
  3. ANGIOTROFIN [Suspect]
     Indication: CARDIOVASCULAR DISORDER
     Dosage: STRENGTH: 90 MG; 1 UNK DAILY
  4. ANGIOTROFIN [Suspect]
     Indication: CARDIAC MURMUR
  5. NUBRENZA [Concomitant]
     Indication: PARKINSON^S DISEASE
     Route: 065
     Dates: start: 201305

REACTIONS (6)
  - Asphyxia [Fatal]
  - Pneumonia [Fatal]
  - Increased upper airway secretion [Not Recovered/Not Resolved]
  - Device related infection [Unknown]
  - Cardiac failure [Not Recovered/Not Resolved]
  - Parkinson^s disease [Not Recovered/Not Resolved]
